FAERS Safety Report 13142228 (Version 1)
Quarter: 2017Q1

REPORT INFORMATION
  Report Type: Report from Study
  Country: US (occurrence: US)
  Receive Date: 20170124
  Receipt Date: 20170124
  Transmission Date: 20170428
  Serious: Yes (Hospitalization)
  Sender: FDA-Public Use
  Company Number: US-TAKEDA-2016MPI010358

PATIENT
  Age: 58 Year
  Sex: Female
  Weight: 63.39 kg

DRUGS (1)
  1. VELCADE [Suspect]
     Active Substance: BORTEZOMIB
     Indication: PLASMA CELL MYELOMA
     Dosage: UNK
     Route: 058

REACTIONS (3)
  - Anxiety [Unknown]
  - Hospitalisation [Unknown]
  - Depression [Unknown]

NARRATIVE: CASE EVENT DATE: 20161111
